FAERS Safety Report 4523173-9 (Version None)
Quarter: 2004Q4

REPORT INFORMATION
  Report Type: 
  Country: None (occurrence: None)
  Receive Date: 20041208
  Receipt Date: 20041122
  Transmission Date: 20050328
  Serious: Yes (Hospitalization)
  Sender: FDA-Public Use
  Company Number: DSA_25440_2004

PATIENT
  Age: 76 Year
  Sex: Female

DRUGS (9)
  1. TEMESTA [Suspect]
     Dosage: 1 MG Q DAY PO
     Route: 048
     Dates: end: 20041020
  2. SOMNIUM /SCH/ [Suspect]
     Dosage: 1 DF Q DAY PO
     Route: 048
  3. MADOPAR [Suspect]
     Indication: PARKINSON'S DISEASE
     Dosage: DF TID
     Dates: start: 20041005, end: 20041020
  4. MADOPAR [Suspect]
     Indication: PARKINSON'S DISEASE
     Dosage: 62.5 MG Q DAY PO
     Route: 048
     Dates: end: 20041004
  5. ASPIRIN [Concomitant]
  6. ACETYLCYSTEINE [Concomitant]
  7. METAMUCIL-2 [Concomitant]
  8. BECLOMETHASONE DIPROPIONATE [Concomitant]
  9. SALBUTAMOL SULFATE [Concomitant]

REACTIONS (8)
  - ANAEMIA [None]
  - BLOOD PRESSURE SYSTOLIC INCREASED [None]
  - FALL [None]
  - HYPERTROPHY [None]
  - SUPRAVENTRICULAR EXTRASYSTOLES [None]
  - SYNCOPE [None]
  - VENTRICULAR EXTRASYSTOLES [None]
  - VERTIGO [None]
